FAERS Safety Report 16847017 (Version 2)
Quarter: 2022Q3

REPORT INFORMATION
  Report Type: Spontaneous
  Country: US (occurrence: US)
  Receive Date: 20190924
  Receipt Date: 20220914
  Transmission Date: 20221027
  Serious: Yes (Disabling)
  Sender: FDA-Public Use
  Company Number: US-TEVA-2019-US-1111375

PATIENT
  Age: 63 Year
  Sex: Female

DRUGS (8)
  1. DOCETAXEL [Suspect]
     Active Substance: DOCETAXEL
     Indication: Breast cancer female
     Dosage: NUMBER OF CYCLES: 06
     Route: 065
     Dates: start: 20150518, end: 20150831
  2. METFORMIN [Concomitant]
     Active Substance: METFORMIN HYDROCHLORIDE
     Indication: Product used for unknown indication
     Dosage: UNTIL PRESENT
     Dates: start: 19980101
  3. LISINOPRIL [Concomitant]
     Active Substance: LISINOPRIL
     Indication: Product used for unknown indication
     Dosage: UNTIL PRESENT
     Dates: start: 19950101
  4. FENOFIBRATE [Concomitant]
     Active Substance: FENOFIBRATE
     Indication: Product used for unknown indication
     Dosage: UNTIL PRESENT
     Dates: start: 19950101
  5. VITAMINS [Concomitant]
     Active Substance: VITAMINS
     Indication: Product used for unknown indication
     Dosage: UNTIL PRESENT
     Dates: start: 19940101
  6. MegaRed oil [Concomitant]
     Indication: Product used for unknown indication
     Dosage: UNTIL PRESENT
     Dates: start: 19900101
  7. CARBOPLATIN [Concomitant]
     Active Substance: CARBOPLATIN
     Indication: Breast cancer female
     Dosage: NUMBER OF CYCLES: 06
     Dates: start: 20150518, end: 20150831
  8. HERCEPTIN [Concomitant]
     Active Substance: TRASTUZUMAB
     Indication: Breast cancer female
     Dosage: NUMBER OF CYCLES: 06
     Dates: start: 20150518, end: 20150831

REACTIONS (4)
  - Madarosis [Not Recovered/Not Resolved]
  - Alopecia areata [Not Recovered/Not Resolved]
  - Hair texture abnormal [Not Recovered/Not Resolved]
  - Hair colour changes [Not Recovered/Not Resolved]

NARRATIVE: CASE EVENT DATE: 20150528
